FAERS Safety Report 4635793-1 (Version None)
Quarter: 2005Q2

REPORT INFORMATION
  Report Type: 
  Country: None (occurrence: None)
  Receive Date: 20050414
  Receipt Date: 20050329
  Transmission Date: 20051028
  Serious: Yes (Death)
  Sender: FDA-Public Use
  Company Number: USA-2004-0018186

PATIENT
  Age: 46 Year
  Sex: Male

DRUGS (11)
  1. OXYCONTIN [Suspect]
     Indication: PAIN
     Dosage: 80 MG, Q8H
     Dates: start: 20030616
  2. HYDROCODONE BITARTRATE [Suspect]
  3. BUTALBITAL [Suspect]
  4. LORTAB [Concomitant]
  5. PROTONIX [Concomitant]
  6. BEXTRA [Concomitant]
  7. SOMA [Concomitant]
  8. ADVAIR (SALMETEROL XINAFOATE, FLUTICASONE PROPIONATE) [Concomitant]
  9. COMBIVENT [Concomitant]
  10. FIORICET [Concomitant]
  11. VALIUM [Concomitant]

REACTIONS (3)
  - COMPLETED SUICIDE [None]
  - DRUG TOXICITY [None]
  - INTENTIONAL MISUSE [None]
